FAERS Safety Report 7535419-3 (Version None)
Quarter: 2011Q2

REPORT INFORMATION
  Report Type: 
  Country: None (occurrence: None)
  Receive Date: 20110609
  Receipt Date: 20080521
  Transmission Date: 20111010
  Serious: Yes (Death)
  Sender: FDA-Public Use
  Company Number: PHHY2008US08656

PATIENT
  Sex: Male
  Weight: 77 kg

DRUGS (1)
  1. EXJADE [Suspect]
     Dosage: 1500 UNK, QD
     Route: 048
     Dates: start: 20080331

REACTIONS (1)
  - DEATH [None]
